FAERS Safety Report 9452758 (Version 1)
Quarter: 2013Q3

REPORT INFORMATION
  Report Type: Report from Study
  Country: US (occurrence: US)
  Receive Date: 20130812
  Receipt Date: 20130812
  Transmission Date: 20140515
  Serious: Yes (Hospitalization)
  Sender: FDA-Public Use
  Company Number: PHEH2013US016718

PATIENT
  Sex: Female

DRUGS (2)
  1. AFINITOR [Suspect]
     Indication: BREAST CANCER
     Dosage: 10 MG, QD
     Route: 048
  2. EXEMESTANE [Concomitant]
     Dosage: UNK UKN, UNK

REACTIONS (2)
  - Dysphonia [Recovering/Resolving]
  - Pharyngeal oedema [Recovering/Resolving]
